FAERS Safety Report 18952014 (Version 1)
Quarter: 2021Q1

REPORT INFORMATION
  Report Type: Spontaneous
  Country: IN (occurrence: IN)
  Receive Date: 20210301
  Receipt Date: 20210301
  Transmission Date: 20210420
  Serious: No
  Sender: FDA-Public Use
  Company Number: IN-LUPIN LIMITED-2021-02600

PATIENT
  Sex: Male

DRUGS (1)
  1. ODOXIL TABS 500 MG [Suspect]
     Active Substance: CEFADROXIL
     Indication: WOUND
     Dosage: 1 DOSAGE FORM ONCE
     Route: 065

REACTIONS (2)
  - Prescription drug used without a prescription [Unknown]
  - No adverse event [Unknown]
